FAERS Safety Report 7540262-5 (Version None)
Quarter: 2011Q2

REPORT INFORMATION
  Report Type: 
  Country: None (occurrence: None)
  Receive Date: 20110610
  Receipt Date: 20110527
  Transmission Date: 20111010
  Serious: Yes (Hospitalization)
  Sender: FDA-Public Use
  Company Number: PHHY2011US41844

PATIENT
  Sex: Female
  Weight: 77.098 kg

DRUGS (4)
  1. GILENYA [Suspect]
     Indication: MULTIPLE SCLEROSIS
     Dosage: 0.5 MG, DAILY
     Route: 048
     Dates: start: 20110322, end: 20110512
  2. TRIHEXYPHENIDYL HCL [Concomitant]
     Dosage: 1 DF, TID (WITH FOOD)
     Route: 048
  3. GILENYA [Suspect]
     Dosage: 0.5 MG, DAILY
     Route: 048
  4. LORAZEPAM [Concomitant]
     Dosage: 1 MG,  1PILL THREE TIMES A DAY
     Route: 048

REACTIONS (14)
  - NYSTAGMUS [None]
  - PYREXIA [None]
  - LIVER FUNCTION TEST ABNORMAL [None]
  - CENTRAL NERVOUS SYSTEM LESION [None]
  - UNRESPONSIVE TO STIMULI [None]
  - MENTAL STATUS CHANGES [None]
  - DIARRHOEA [None]
  - MULTIPLE SCLEROSIS RELAPSE [None]
  - DYSARTHRIA [None]
  - LEUKOCYTOSIS [None]
  - TACHYCARDIA [None]
  - HYPOAESTHESIA [None]
  - TREMOR [None]
  - VISUAL IMPAIRMENT [None]
